FAERS Safety Report 5177235-6 (Version None)
Quarter: 2006Q4

REPORT INFORMATION
  Report Type: 
  Country: None (occurrence: None)
  Receive Date: 20061218
  Receipt Date: 20010301
  Transmission Date: 20070319
  Serious: Yes (Other)
  Sender: FDA-Public Use
  Company Number: US-ELI_LILLY_AND_COMPANY-US_010361086

PATIENT
  Age: 75 Year
  Sex: Female
  Weight: 50 kg

DRUGS (6)
  1. EVISTA [Suspect]
     Indication: OSTEOPOROSIS PROPHYLAXIS
     Dosage: UNK, UNKNOWN
     Route: 048
     Dates: start: 20000113, end: 20010113
  2. EVISTA [Suspect]
  3. SYNTHROID [Concomitant]
     Dosage: 0.075 MG, UNKNOWN
     Route: 048
  4. LIPITOR [Concomitant]
     Dosage: 10 MG, UNKNOWN
     Route: 048
  5. COZAAR [Concomitant]
     Dosage: 50 MG, UNKNOWN
     Route: 048
  6. VITAMINS NOS [Concomitant]
     Dosage: UNK, UNKNOWN
     Route: 048

REACTIONS (4)
  - SLEEP DISORDER [None]
  - UTERINE LEIOMYOMA [None]
  - UTERINE POLYP [None]
  - VAGINAL HAEMORRHAGE [None]
